FAERS Safety Report 5642141-7 (Version None)
Quarter: 2008Q1

REPORT INFORMATION
  Report Type: 
  Country: None (occurrence: None)
  Receive Date: 20080225
  Receipt Date: 20080214
  Transmission Date: 20080703
  Serious: Yes (Disabling)
  Sender: FDA-Public Use
  Company Number: OSCN-NO-0802L-0076

PATIENT
  Age: 52 Year
  Sex: Female

DRUGS (20)
  1. OMNISCAN [Suspect]
     Indication: HYPERPARATHYROIDISM
     Dosage: SINGLE DOSE, I.V.. SINGLE DOSE, I.V., SINGLE DOSE, I.V.
     Route: 042
     Dates: start: 19970401, end: 19970401
  2. OMNISCAN [Suspect]
     Indication: PITUITARY TUMOUR BENIGN
     Dosage: SINGLE DOSE, I.V.. SINGLE DOSE, I.V., SINGLE DOSE, I.V.
     Route: 042
     Dates: start: 19970401, end: 19970401
  3. OMNISCAN [Suspect]
     Indication: POLYARTHRITIS
     Dosage: SINGLE DOSE, I.V.. SINGLE DOSE, I.V., SINGLE DOSE, I.V.
     Route: 042
     Dates: start: 19970401, end: 19970401
  4. OMNISCAN [Suspect]
     Indication: HYPERPARATHYROIDISM
     Dosage: SINGLE DOSE, I.V.. SINGLE DOSE, I.V., SINGLE DOSE, I.V.
     Route: 042
     Dates: start: 19970901, end: 19970901
  5. OMNISCAN [Suspect]
     Indication: PITUITARY TUMOUR BENIGN
     Dosage: SINGLE DOSE, I.V.. SINGLE DOSE, I.V., SINGLE DOSE, I.V.
     Route: 042
     Dates: start: 19970901, end: 19970901
  6. OMNISCAN [Suspect]
     Indication: POLYARTHRITIS
     Dosage: SINGLE DOSE, I.V.. SINGLE DOSE, I.V., SINGLE DOSE, I.V.
     Route: 042
     Dates: start: 19970901, end: 19970901
  7. OMNISCAN [Suspect]
     Indication: HYPERPARATHYROIDISM
     Dosage: SINGLE DOSE, I.V.. SINGLE DOSE, I.V., SINGLE DOSE, I.V.
     Route: 042
     Dates: start: 19980201, end: 19980201
  8. OMNISCAN [Suspect]
     Indication: PITUITARY TUMOUR BENIGN
     Dosage: SINGLE DOSE, I.V.. SINGLE DOSE, I.V., SINGLE DOSE, I.V.
     Route: 042
     Dates: start: 19980201, end: 19980201
  9. OMNISCAN [Suspect]
     Indication: POLYARTHRITIS
     Dosage: SINGLE DOSE, I.V.. SINGLE DOSE, I.V., SINGLE DOSE, I.V.
     Route: 042
     Dates: start: 19980201, end: 19980201
  10. OMNISCAN [Suspect]
     Indication: HYPERPARATHYROIDISM
     Dosage: SINGLE DOSE, I.V.. SINGLE DOSE, I.V., SINGLE DOSE, I.V.
     Route: 042
     Dates: start: 20020401, end: 20020401
  11. OMNISCAN [Suspect]
     Indication: PITUITARY TUMOUR BENIGN
     Dosage: SINGLE DOSE, I.V.. SINGLE DOSE, I.V., SINGLE DOSE, I.V.
     Route: 042
     Dates: start: 20020401, end: 20020401
  12. OMNISCAN [Suspect]
     Indication: POLYARTHRITIS
     Dosage: SINGLE DOSE, I.V.. SINGLE DOSE, I.V., SINGLE DOSE, I.V.
     Route: 042
     Dates: start: 20020401, end: 20020401
  13. GADOPENTETATE DIMEGLUMINE (MAGNEVIST) [Concomitant]
  14. SEVELAMER [Concomitant]
  15. ALUMINUM HYDROXIDE GEL [Concomitant]
  16. PARICALCITOL [Concomitant]
  17. PHENPROCOUMON [Concomitant]
  18. WATER-SOLUBLE VITAMINS [Concomitant]
  19. ERYTHROPOIETIN ALFA [Concomitant]
  20. HORMONE SUBSTITUTION [Concomitant]

REACTIONS (2)
  - ARTERIOVENOUS FISTULA [None]
  - NEPHROGENIC SYSTEMIC FIBROSIS [None]
